FAERS Safety Report 13655642 (Version 1)
Quarter: 2017Q2

REPORT INFORMATION
  Report Type: Spontaneous
  Country: FR (occurrence: FR)
  Receive Date: 20170615
  Receipt Date: 20170615
  Transmission Date: 20170830
  Serious: Yes (Other)
  Sender: FDA-Public Use
  Company Number: FR-ABBVIE-17P-056-2007089-00

PATIENT
  Age: 54 Year
  Sex: Male

DRUGS (7)
  1. PAROXETINE HYDROCHLORIDE. [Suspect]
     Active Substance: PAROXETINE HYDROCHLORIDE
     Indication: ANXIETY DISORDER
     Route: 048
     Dates: start: 2016
  2. RAMIPRIL. [Suspect]
     Active Substance: RAMIPRIL
     Indication: HYPERTENSION
     Route: 048
  3. DEPAKINE [Suspect]
     Active Substance: VALPROATE SODIUM
     Indication: EPILEPSY
     Route: 048
  4. DEPAKINE [Suspect]
     Active Substance: VALPROATE SODIUM
     Route: 048
  5. VALIUM [Suspect]
     Active Substance: DIAZEPAM
     Indication: MYOCLONIC EPILEPSY
     Route: 048
  6. VALIUM [Suspect]
     Active Substance: DIAZEPAM
     Indication: EPILEPSY
  7. KEPPRA [Suspect]
     Active Substance: LEVETIRACETAM
     Indication: EPILEPSY
     Route: 048

REACTIONS (2)
  - Tremor [Unknown]
  - Dysgraphia [Unknown]

NARRATIVE: CASE EVENT DATE: 2013
